FAERS Safety Report 5901951-9 (Version None)
Quarter: 2008Q3

REPORT INFORMATION
  Report Type: 
  Country: None (occurrence: None)
  Receive Date: 20080929
  Receipt Date: 20080718
  Transmission Date: 20090109
  Serious: No
  Sender: FDA-Public Use
  Company Number: US-BRISTOL-MYERS SQUIBB COMPANY-14267553

PATIENT
  Age: 4 Decade
  Sex: Male

DRUGS (1)
  1. BUSPAR [Suspect]
     Indication: DEPRESSION
     Dosage: HE STARTED TAKING 15 MG/DAY AND AFTER ONE WEEK THE DOSE WAS INCREASED TO 30 MG/DAY
     Dates: start: 20080101

REACTIONS (2)
  - DEPRESSED MOOD [None]
  - DEPRESSION [None]
